FAERS Safety Report 4998831-2 (Version None)
Quarter: 2006Q2

REPORT INFORMATION
  Report Type: 
  Country: None (occurrence: None)
  Receive Date: 20060510
  Receipt Date: 20060307
  Transmission Date: 20061013
  Serious: Yes (Life-Threatening, Hospitalization)
  Sender: FDA-Public Use
  Company Number: GB-MERCK-0603GBR00031

PATIENT
  Age: 81 Year
  Sex: Female
  Weight: 64 kg

DRUGS (11)
  1. FOSAMAX [Suspect]
     Indication: OSTEOPOROSIS
     Route: 048
     Dates: start: 20011113, end: 20050705
  2. ACETAMINOPHEN [Concomitant]
     Indication: PAIN
     Route: 065
     Dates: start: 20011113
  3. ACETAMINOPHEN [Concomitant]
     Indication: OSTEOARTHRITIS
     Route: 065
     Dates: start: 20011113
  4. WARFARIN [Concomitant]
     Indication: ATRIAL FIBRILLATION
     Route: 065
     Dates: start: 20031017, end: 20050705
  5. SOTALOL HYDROCHLORIDE [Concomitant]
     Indication: ATRIAL FIBRILLATION
     Route: 065
     Dates: start: 20031125, end: 20050705
  6. VALSARTAN [Concomitant]
     Indication: HYPERTENSION
     Route: 065
     Dates: start: 20011127
  7. IBUPROFEN [Concomitant]
     Indication: PAIN
     Route: 061
     Dates: start: 20041119, end: 20050902
  8. IBUPROFEN [Concomitant]
     Indication: OSTEOARTHRITIS
     Route: 061
     Dates: start: 20041119, end: 20050902
  9. TRAMADOL HYDROCHLORIDE [Concomitant]
     Indication: PAIN
     Route: 065
     Dates: start: 20050323, end: 20050705
  10. TRAMADOL HYDROCHLORIDE [Concomitant]
     Indication: OSTEOARTHRITIS
     Route: 065
     Dates: start: 20050323, end: 20050705
  11. NIFEDIPINE [Concomitant]
     Indication: HYPERTENSION
     Route: 065
     Dates: start: 20030930, end: 20050705

REACTIONS (1)
  - DUODENAL ULCER HAEMORRHAGE [None]
